FAERS Safety Report 9484467 (Version 2)
Quarter: 2013Q3

REPORT INFORMATION
  Report Type: Spontaneous
  Country: US (occurrence: US)
  Receive Date: 20130828
  Receipt Date: 20130828
  Transmission Date: 20140515
  Serious: Yes (Hospitalization)
  Sender: FDA-Public Use
  Company Number: US-AMGEN-KDL399987

PATIENT
  Age: 33 Year
  Sex: Female

DRUGS (4)
  1. ENBREL [Suspect]
     Indication: RHEUMATOID ARTHRITIS
     Dosage: 50 MG, QWK
     Route: 058
     Dates: start: 20081201, end: 20090601
  2. ERGOCALCIFEROL [Concomitant]
     Dosage: UNK UNK, UNK
     Route: 065
  3. IRON [Concomitant]
     Dosage: UNK UNK, UNK
     Route: 065
  4. IBUPROFEN [Concomitant]
     Dosage: 800 MG, QD
     Route: 065

REACTIONS (6)
  - Labour complication [Recovered/Resolved]
  - Hypertension [Recovered/Resolved]
  - Dizziness [Unknown]
  - Presyncope [Unknown]
  - Rheumatoid arthritis [Recovering/Resolving]
  - Drug ineffective [Not Recovered/Not Resolved]
